FAERS Safety Report 22092168 (Version 1)
Quarter: 2023Q1

REPORT INFORMATION
  Report Type: Spontaneous
  Country: AR (occurrence: AR)
  Receive Date: 20230314
  Receipt Date: 20230314
  Transmission Date: 20230418
  Serious: Yes (Other)
  Sender: FDA-Public Use
  Company Number: AR-PFIZER INC-PV202300044491

PATIENT
  Age: 77 Year
  Sex: Female

DRUGS (1)
  1. ENBREL [Suspect]
     Active Substance: ETANERCEPT
     Indication: Rheumatoid arthritis
     Dosage: 50 MILLIGRAM, QWK
     Route: 065
     Dates: start: 20130912, end: 20220704

REACTIONS (6)
  - Cerebrovascular accident [Unknown]
  - Thrombosis [Unknown]
  - Nervous system disorder [Unknown]
  - Gait disturbance [Unknown]
  - Drug ineffective [Unknown]
  - Administration site pain [Unknown]

NARRATIVE: CASE EVENT DATE: 20210101
